FAERS Safety Report 8394038-X (Version None)
Quarter: 2012Q2

REPORT INFORMATION
  Report Type: 
  Country: None (occurrence: None)
  Receive Date: 20120530
  Receipt Date: 20120518
  Transmission Date: 20120825
  Serious: No
  Sender: FDA-Public Use
  Company Number: US-JNJFOC-20120516333

PATIENT
  Sex: Female
  Weight: 76.2 kg

DRUGS (9)
  1. FENTANYL-100 [Suspect]
     Indication: PAIN
     Route: 062
     Dates: start: 20120515
  2. UNKNOWN MEDICATION [Concomitant]
     Indication: SLEEP DISORDER
     Route: 048
     Dates: start: 20110101
  3. FENTANYL-100 [Suspect]
     Route: 062
  4. UNKNOWN MEDICATION [Concomitant]
     Route: 065
     Dates: end: 20110101
  5. FENTANYL-100 [Suspect]
     Indication: PAIN
     Route: 062
  6. SINGULAIR [Concomitant]
     Indication: ASTHMA
     Route: 048
     Dates: start: 20090101
  7. UNSPECIFIED BLOOD PRESSURE MEDS [Concomitant]
     Indication: HYPERTENSION
     Route: 048
  8. CORTICOSTEROID [Concomitant]
     Indication: ASTHMA
     Route: 065
     Dates: end: 20090101
  9. PLAVIX [Concomitant]
     Indication: AORTIC VALVE DISEASE
     Route: 048

REACTIONS (4)
  - LARYNGITIS [None]
  - PRODUCT QUALITY ISSUE [None]
  - WRONG TECHNIQUE IN DRUG USAGE PROCESS [None]
  - PRODUCT COLOUR ISSUE [None]
